FAERS Safety Report 6071594-8 (Version None)
Quarter: 2009Q1

REPORT INFORMATION
  Report Type: 
  Country: None (occurrence: None)
  Receive Date: 20090205
  Receipt Date: 20090205
  Transmission Date: 20090719
  Serious: No
  Sender: FDA-Public Use
  Company Number: None

PATIENT
  Age: 55 Year
  Sex: Male

DRUGS (1)
  1. LEVAQUIN [Suspect]
     Dosage: 500 MG Q. DAY IV PIGGYBACK
     Route: 042
     Dates: start: 20090202, end: 20090203

REACTIONS (1)
  - INJECTION SITE ERYTHEMA [None]
